FAERS Safety Report 21324190 (Version 1)
Quarter: 2022Q3

REPORT INFORMATION
  Report Type: Spontaneous
  Country: US (occurrence: None)
  Receive Date: 20220910
  Receipt Date: 20220910
  Transmission Date: 20221027
  Serious: Yes (Other)
  Sender: FDA-Public Use
  Company Number: None

PATIENT
  Age: 34 Year
  Sex: Female
  Weight: 56.25 kg

DRUGS (5)
  1. OSELTAMIVIR PHOSPHATE [Suspect]
     Active Substance: OSELTAMIVIR PHOSPHATE
     Indication: Influenza
     Dosage: OTHER QUANTITY : 10 CAPSULE(S);?FREQUENCY : TWICE A DAY;?
     Route: 048
     Dates: start: 20220830, end: 20220901
  2. PAROXETINE [Concomitant]
  3. SPIRONOLACTONE [Concomitant]
     Active Substance: SPIRONOLACTONE
  4. ALBUTEROL [Concomitant]
  5. HIGH-DOSE VITAMIN A (^NUTRAFOL^) [Concomitant]

REACTIONS (5)
  - Diarrhoea [None]
  - Diarrhoea [None]
  - Eye pain [None]
  - Ocular hyperaemia [None]
  - Agitation [None]

NARRATIVE: CASE EVENT DATE: 20220901
